FAERS Safety Report 18273835 (Version 1)
Quarter: 2020Q3

REPORT INFORMATION
  Report Type: Spontaneous
  Country: US (occurrence: US)
  Receive Date: 20200916
  Receipt Date: 20200916
  Transmission Date: 20201103
  Serious: Yes (Other)
  Sender: FDA-Public Use
  Company Number: US-PURDUE-USA-2020-0166028

PATIENT
  Sex: Male
  Weight: 104 kg

DRUGS (22)
  1. OXYCODONE HYDROCHLORIDE (SIMILAR TO NDA 22?272) [Suspect]
     Active Substance: OXYCODONE HYDROCHLORIDE
     Dosage: 30 MG, UNK
     Route: 048
     Dates: start: 2003
  2. HYDROMORPHONE TABLETS [Suspect]
     Active Substance: HYDROMORPHONE
     Indication: PAIN
     Dosage: 16 MG, UNK
     Route: 048
     Dates: start: 2003
  3. CYMBALTA [Concomitant]
     Active Substance: DULOXETINE HYDROCHLORIDE
     Indication: PRODUCT USED FOR UNKNOWN INDICATION
     Dosage: 60 MG, DAILY
     Route: 048
  4. OXYCONTIN [Suspect]
     Active Substance: OXYCODONE HYDROCHLORIDE
     Indication: PAIN
     Dosage: 60 MG, UNK
     Route: 048
     Dates: start: 2003
  5. HYDROCODONE BITARTRATE AND ACETAMINOPHEN [Suspect]
     Active Substance: ACETAMINOPHEN\HYDROCODONE BITARTRATE
     Indication: PAIN
     Dosage: UNK
     Route: 048
     Dates: start: 2003
  6. MORPHINE SULFATE EXTENDED?RELEASE TABLETS (RHODES 74?769, 74?862) [Suspect]
     Active Substance: MORPHINE SULFATE
     Dosage: 60 MG, UNK
     Route: 048
     Dates: start: 2015
  7. MORPHINE SULFATE EXTENDED?RELEASE TABLETS (RHODES 74?769, 74?862) [Suspect]
     Active Substance: MORPHINE SULFATE
     Dosage: 120 MG, UNK
     Route: 048
     Dates: start: 2015
  8. MORPHINE SULFATE (SIMILAR TO NDA 19?516) [Suspect]
     Active Substance: MORPHINE SULFATE
     Indication: PAIN
     Dosage: UNK
     Route: 065
  9. EXALGO [Suspect]
     Active Substance: HYDROMORPHONE HYDROCHLORIDE
     Indication: PAIN
     Dosage: 16 MG, UNK
     Route: 048
     Dates: start: 2003
  10. CRESTOR [Concomitant]
     Active Substance: ROSUVASTATIN CALCIUM
     Indication: PRODUCT USED FOR UNKNOWN INDICATION
     Dosage: 20 MG, DAILY
     Route: 048
  11. OXYCONTIN [Suspect]
     Active Substance: OXYCODONE HYDROCHLORIDE
     Dosage: 40 MG, UNK
     Route: 048
     Dates: start: 2003
  12. HYDROMORPHONE TABLETS [Suspect]
     Active Substance: HYDROMORPHONE
     Dosage: 8 MG, UNK
     Route: 048
     Dates: start: 2003
  13. OXYCODONE/ ACETAMINOPHEN TABLETS [Suspect]
     Active Substance: ACETAMINOPHEN\OXYCODONE HYDROCHLORIDE
     Indication: PAIN
     Dosage: UNK
     Route: 048
     Dates: start: 2003
  14. MORPHINE SULFATE EXTENDED?RELEASE TABLETS (RHODES 74?769, 74?862) [Suspect]
     Active Substance: MORPHINE SULFATE
     Dosage: 30 MG, UNK
     Route: 048
     Dates: start: 2003
  15. EXALGO [Suspect]
     Active Substance: HYDROMORPHONE HYDROCHLORIDE
     Dosage: 8 MG, UNK
     Route: 048
     Dates: start: 2003
  16. OPANA [Suspect]
     Active Substance: OXYMORPHONE HYDROCHLORIDE
     Indication: PAIN
     Dosage: 20 MG, UNK
     Route: 048
     Dates: start: 2003
  17. BYSTOLIC [Concomitant]
     Active Substance: NEBIVOLOL HYDROCHLORIDE
     Indication: PRODUCT USED FOR UNKNOWN INDICATION
     Dosage: 5 MG, DAILY
     Route: 048
  18. MORPHINE SULFATE EXTENDED?RELEASE TABLETS (RHODES 74?769, 74?862) [Suspect]
     Active Substance: MORPHINE SULFATE
     Indication: PAIN
     Dosage: 15 MG, UNK
     Route: 048
     Dates: start: 2003
  19. OXYCODONE HYDROCHLORIDE (SIMILAR TO NDA 22?272) [Suspect]
     Active Substance: OXYCODONE HYDROCHLORIDE
     Indication: PAIN
     Dosage: 15 MG, UNK
     Route: 048
     Dates: start: 2003
  20. FENTANYL. [Suspect]
     Active Substance: FENTANYL
     Indication: PAIN
     Dosage: UNK
     Route: 062
  21. DILAUDID [Suspect]
     Active Substance: HYDROMORPHONE HYDROCHLORIDE
     Indication: PAIN
     Dosage: UNK
     Route: 048
     Dates: start: 2003
  22. TRAMADOL. [Suspect]
     Active Substance: TRAMADOL
     Indication: PAIN
     Dosage: UNK
     Route: 065
     Dates: start: 2003

REACTIONS (26)
  - Dyskinesia [Unknown]
  - Osteoarthritis [Unknown]
  - Chills [Unknown]
  - Nightmare [Unknown]
  - Head titubation [Unknown]
  - Arthritis [Unknown]
  - Memory impairment [Unknown]
  - Pain [Unknown]
  - Snoring [Unknown]
  - Sleep apnoea syndrome [Unknown]
  - Heart rate decreased [Unknown]
  - Hypersomnia [Unknown]
  - Drug dependence [Unknown]
  - Diabetes mellitus [Unknown]
  - Neuropathy peripheral [Unknown]
  - Parkinson^s disease [Unknown]
  - Drug withdrawal syndrome [Unknown]
  - Haemochromatosis [Unknown]
  - Peripheral arterial occlusive disease [Unknown]
  - Disturbance in attention [Unknown]
  - Sleep talking [Unknown]
  - Back pain [Unknown]
  - Intervertebral disc degeneration [Unknown]
  - Dementia [Unknown]
  - Coma [Unknown]
  - Rhinorrhoea [Unknown]

NARRATIVE: CASE EVENT DATE: 2015
